FAERS Safety Report 11335963 (Version 1)
Quarter: 2015Q3

REPORT INFORMATION
  Report Type: Spontaneous
  Country: IT (occurrence: IT)
  Receive Date: 20150804
  Receipt Date: 20150804
  Transmission Date: 20151125
  Serious: Yes (Hospitalization)
  Sender: FDA-Public Use
  Company Number: IT-TEVA-583109ACC

PATIENT
  Age: 58 Year
  Sex: Female
  Weight: 68 kg

DRUGS (2)
  1. BETAXOLOL. [Concomitant]
     Active Substance: BETAXOLOL
     Indication: OVARIAN CANCER
     Route: 042
     Dates: start: 20150306, end: 20150626
  2. CARBOPLATINO TEVA - 45 ML 10 MG/ML - TEVA PHARMA B.V. [Suspect]
     Active Substance: CARBOPLATIN
     Indication: OVARIAN CANCER
     Dosage: 450 MG MONTHLY
     Route: 042
     Dates: start: 20150306, end: 20150626

REACTIONS (7)
  - Erythema [Recovered/Resolved]
  - Pain [Recovered/Resolved]
  - Presyncope [Recovered/Resolved]
  - Oedema [Recovered/Resolved]
  - Paraesthesia [Recovered/Resolved]
  - Abdominal pain upper [Recovered/Resolved]
  - Oral dysaesthesia [Recovered/Resolved]

NARRATIVE: CASE EVENT DATE: 20150626
